FAERS Safety Report 8613740-5 (Version None)
Quarter: 2012Q3

REPORT INFORMATION
  Report Type: 
  Country: None (occurrence: None)
  Receive Date: 20120823
  Receipt Date: 20120816
  Transmission Date: 20120928
  Serious: No
  Sender: FDA-Public Use
  Company Number: US-BIOGENIDEC-2012BI031960

PATIENT
  Age: 40 Year
  Sex: Female

DRUGS (3)
  1. TYSABRI [Suspect]
     Indication: MULTIPLE SCLEROSIS
     Route: 042
     Dates: start: 20120531
  2. TYSABRI [Suspect]
     Route: 042
     Dates: start: 20090513, end: 20090707
  3. TYSABRI [Suspect]
     Route: 042
     Dates: start: 20080214, end: 20081210

REACTIONS (1)
  - HEADACHE [None]
